FAERS Safety Report 6934901-7 (Version None)
Quarter: 2010Q3

REPORT INFORMATION
  Report Type: 
  Country: None (occurrence: None)
  Receive Date: 20100821
  Receipt Date: 20100807
  Transmission Date: 20110219
  Serious: Yes (Hospitalization)
  Sender: FDA-Public Use
  Company Number: PHHY2010AU52268

PATIENT
  Sex: Female

DRUGS (2)
  1. CLOZARIL [Suspect]
     Dosage: 650 MG
     Dates: start: 20070103
  2. CLOZARIL [Suspect]
     Dosage: UNK
     Dates: start: 20100804

REACTIONS (3)
  - MENTAL DISORDER [None]
  - NEGLECT OF PERSONAL APPEARANCE [None]
  - TREATMENT NONCOMPLIANCE [None]
